FAERS Safety Report 15222426 (Version 2)
Quarter: 2018Q3

REPORT INFORMATION
  Report Type: Report from Study
  Country: US (occurrence: US)
  Receive Date: 20180731
  Receipt Date: 20180820
  Transmission Date: 20181010
  Serious: Yes (Other)
  Sender: FDA-Public Use
  Company Number: US-GILEAD-2018-0352581

PATIENT
  Age: 84 Year
  Sex: Female

DRUGS (2)
  1. IDELALISIB [Suspect]
     Active Substance: IDELALISIB
     Indication: LEUKAEMIA
     Dosage: 100 MG, BID
     Route: 048
     Dates: start: 2010
  2. IDELALISIB [Suspect]
     Active Substance: IDELALISIB
     Indication: MARGINAL ZONE LYMPHOMA

REACTIONS (5)
  - Product use issue [Unknown]
  - Post procedural complication [Unknown]
  - Diarrhoea [Not Recovered/Not Resolved]
  - Deafness [Not Recovered/Not Resolved]
  - Cystitis escherichia [Unknown]

NARRATIVE: CASE EVENT DATE: 201807
